FAERS Safety Report 7812365-9 (Version None)
Quarter: 2011Q4

REPORT INFORMATION
  Report Type: 
  Country: None (occurrence: None)
  Receive Date: 20111013
  Receipt Date: 20111006
  Transmission Date: 20120403
  Serious: Yes (Hospitalization)
  Sender: FDA-Public Use
  Company Number: US-GLAXOSMITHKLINE-B0752632A

PATIENT
  Age: 38 Year
  Sex: Female

DRUGS (17)
  1. COLACE [Concomitant]
  2. OXYGEN [Concomitant]
  3. ASCORBIC ACID [Concomitant]
  4. SENNA [Concomitant]
  5. LISINOPRIL [Concomitant]
     Dosage: 40MG PER DAY
  6. NIFEDIPINE [Concomitant]
  7. REMERON [Concomitant]
  8. PERCOCET [Concomitant]
  9. REVATIO [Concomitant]
  10. EPOPROSTENOL SODIUM [Suspect]
  11. PROTONIX [Concomitant]
  12. ASPIRIN [Concomitant]
  13. ZOFRAN [Concomitant]
  14. LETAIRIS [Suspect]
     Indication: PULMONARY HYPERTENSION
     Route: 048
     Dates: start: 20110813
  15. PLAVIX [Concomitant]
  16. MULTI-VITAMINS [Concomitant]
  17. ACETAMINOPHEN AND OXYCODONE HCL [Concomitant]

REACTIONS (4)
  - CLOSTRIDIUM DIFFICILE COLITIS [None]
  - NAUSEA [None]
  - DYSPNOEA [None]
  - CHEST PAIN [None]
